FAERS Safety Report 24781978 (Version 1)
Quarter: 2024Q4

REPORT INFORMATION
  Report Type: Spontaneous
  Country: US (occurrence: None)
  Receive Date: 20241226
  Receipt Date: 20241226
  Transmission Date: 20250114
  Serious: Yes (Other)
  Sender: Public
  Company Number: None

PATIENT
  Age: 55 Year
  Sex: Female
  Weight: 46.35 kg

DRUGS (1)
  1. BENADRYL ALLERGY [Suspect]
     Active Substance: DIPHENHYDRAMINE HYDROCHLORIDE
     Indication: Ear disorder
     Route: 048

REACTIONS (2)
  - Depressed mood [None]
  - Mental disorder [None]

NARRATIVE: CASE EVENT DATE: 20120314
